FAERS Safety Report 10996754 (Version 1)
Quarter: 2015Q2

REPORT INFORMATION
  Report Type: Spontaneous
  Country: FR (occurrence: FR)
  Receive Date: 20150408
  Receipt Date: 20150408
  Transmission Date: 20150821
  Serious: Yes (Hospitalization)
  Sender: FDA-Public Use
  Company Number: FR-AUROBINDO-AUR-APL-2015-03064

PATIENT
  Age: 23 Year
  Sex: Female

DRUGS (1)
  1. TRAMADOL ARROW 100MG [Suspect]
     Active Substance: TRAMADOL
     Indication: BACK PAIN
     Dosage: 700 MG, UNK
     Route: 048
     Dates: start: 20150313, end: 20150313

REACTIONS (4)
  - Malaise [Recovered/Resolved]
  - Vomiting [Recovered/Resolved]
  - Dizziness [Recovered/Resolved]
  - Incorrect dose administered [Recovered/Resolved]

NARRATIVE: CASE EVENT DATE: 20150313
